FAERS Safety Report 14861559 (Version 1)
Quarter: 2018Q2

REPORT INFORMATION
  Report Type: Spontaneous
  Country: US (occurrence: US)
  Receive Date: 20180508
  Receipt Date: 20180508
  Transmission Date: 20180711
  Serious: No
  Sender: FDA-Public Use
  Company Number: US-PERRIGO-17US025029

PATIENT
  Age: 22 Year
  Sex: Male
  Weight: 86.17 kg

DRUGS (5)
  1. PERMETHRIN. [Suspect]
     Active Substance: PERMETHRIN
     Dosage: UNKNOWN, ONCE
     Route: 061
     Dates: start: 20170606, end: 20170606
  2. PERMETHRIN. [Suspect]
     Active Substance: PERMETHRIN
     Indication: ACARODERMATITIS
     Dosage: UNKNOWN, ONCE WEEKLY, TOTAL OF 3 TREATMENTS
     Route: 061
     Dates: start: 201703, end: 2017
  3. OTHER ECTOPARASITICIDES, INCL. SCABICIDES [Concomitant]
     Indication: ACARODERMATITIS
     Dosage: UNK, SINGLE
     Route: 048
     Dates: start: 20170530, end: 20170530
  4. OTHER ECTOPARASITICIDES, INCL. SCABICIDES [Concomitant]
     Dosage: UNK, SINGLE
     Route: 048
     Dates: start: 20170606, end: 20170606
  5. PERMETHRIN. [Suspect]
     Active Substance: PERMETHRIN
     Dosage: UNKNOWN, ONCE
     Route: 061
     Dates: start: 20170530, end: 20170530

REACTIONS (3)
  - Alopecia [Recovering/Resolving]
  - Prescribed overdose [Recovered/Resolved]
  - Inappropriate schedule of drug administration [Recovered/Resolved]

NARRATIVE: CASE EVENT DATE: 2017
